FAERS Safety Report 16056157 (Version 1)
Quarter: 2019Q1

REPORT INFORMATION
  Report Type: Report from Study
  Country: CO (occurrence: CO)
  Receive Date: 20190311
  Receipt Date: 20190311
  Transmission Date: 20190418
  Serious: Yes (Hospitalization, Other)
  Sender: FDA-Public Use
  Company Number: CO-SA-2019SA061130

PATIENT
  Age: 35 Year
  Sex: Male

DRUGS (2)
  1. INSULIN GLULISINE [Suspect]
     Active Substance: INSULIN GLULISINE
     Indication: TYPE 1 DIABETES MELLITUS
     Dosage: 4 OR 5 IU ACCORDING GLUCOMETRIES TID
     Route: 058
     Dates: start: 20151123
  2. LANTUS [Suspect]
     Active Substance: INSULIN GLARGINE
     Indication: TYPE 1 DIABETES MELLITUS
     Dosage: 11 IU, QD
     Route: 058
     Dates: start: 20151124

REACTIONS (5)
  - Pain [Unknown]
  - Mass [Unknown]
  - Inflammation [Unknown]
  - Pain in extremity [Unknown]
  - Renal impairment [Unknown]

NARRATIVE: CASE EVENT DATE: 20190204
